FAERS Safety Report 5688078-9 (Version None)
Quarter: 2008Q1

REPORT INFORMATION
  Report Type: 
  Country: None (occurrence: None)
  Receive Date: 20080327
  Receipt Date: 20080319
  Transmission Date: 20080703
  Serious: Yes (Hospitalization, Other)
  Sender: FDA-Public Use
  Company Number: JPI-P-003013

PATIENT
  Sex: Female

DRUGS (3)
  1. XYREM [Suspect]
     Indication: INSOMNIA
     Dosage: 10 GAM (5 GM, 2 IN 1 D), ORAL; 18 GM, TOTAL 18 GRAMS/DAY SPLIT UP INTO 3 DOSES), ORAL
     Route: 048
     Dates: end: 20071101
  2. BUPROPION HYDROCHLORIDE [Concomitant]
  3. ANTI-HYPERTENSIVE               (ANTI-HYPERTENSIVE) [Concomitant]

REACTIONS (2)
  - GRAND MAL CONVULSION [None]
  - INCORRECT DOSE ADMINISTERED [None]
